FAERS Safety Report 16689789 (Version 2)
Quarter: 2019Q3

REPORT INFORMATION
  Report Type: Spontaneous
  Country: US (occurrence: US)
  Receive Date: 20190809
  Receipt Date: 20190903
  Transmission Date: 20191004
  Serious: No
  Sender: FDA-Public Use
  Company Number: US-CELGENEUS-USA-20190801321

PATIENT
  Age: 51 Year
  Sex: Male

DRUGS (5)
  1. VELCADE [Concomitant]
     Active Substance: BORTEZOMIB
     Indication: PRODUCT USED FOR UNKNOWN INDICATION
     Route: 065
  2. REVLIMID [Suspect]
     Active Substance: LENALIDOMIDE
     Dosage: 25 MILLIGRAM
     Route: 048
     Dates: start: 20190716
  3. DEXAMETHASONE. [Concomitant]
     Active Substance: DEXAMETHASONE
     Indication: PRODUCT USED FOR UNKNOWN INDICATION
     Route: 065
  4. REVLIMID [Suspect]
     Active Substance: LENALIDOMIDE
     Indication: PLASMA CELL MYELOMA
     Dosage: 25 MILLIGRAM
     Route: 048
     Dates: start: 201905
  5. AMLODIPINE [Concomitant]
     Active Substance: AMLODIPINE BESYLATE
     Indication: PRODUCT USED FOR UNKNOWN INDICATION
     Route: 065

REACTIONS (9)
  - Pain [Not Recovered/Not Resolved]
  - Anxiety [Not Recovered/Not Resolved]
  - Diarrhoea [Not Recovered/Not Resolved]
  - Rash generalised [Unknown]
  - Stomatitis [Not Recovered/Not Resolved]
  - Fatigue [Not Recovered/Not Resolved]
  - Dyspnoea [Not Recovered/Not Resolved]
  - Insomnia [Not Recovered/Not Resolved]
  - Adverse drug reaction [Unknown]

NARRATIVE: CASE EVENT DATE: 2019
